FAERS Safety Report 5860310-8 (Version None)
Quarter: 2008Q3

REPORT INFORMATION
  Report Type: 
  Country: None (occurrence: None)
  Receive Date: 20080827
  Receipt Date: 20080122
  Transmission Date: 20090109
  Serious: No
  Sender: FDA-Public Use
  Company Number: US-ABBOTT-07P-163-0415075-00

PATIENT
  Sex: Female
  Weight: 96 kg

DRUGS (6)
  1. COATED PDS [Suspect]
     Indication: HIGH DENSITY LIPOPROTEIN DECREASED
     Route: 048
     Dates: start: 20070814
  2. COATED PDS [Suspect]
     Dosage: NOT COATED
     Route: 048
     Dates: start: 20060801, end: 20070814
  3. NATEGLINIDE [Concomitant]
     Indication: DIABETES MELLITUS
     Route: 048
  4. ALLOPURINOL [Concomitant]
     Indication: GOUT
     Route: 048
  5. FUROSEMIDE [Concomitant]
     Indication: FLUID RETENTION
     Route: 048
  6. METOPROLOL SUCCINATE [Concomitant]
     Indication: HYPERTENSION
     Route: 048

REACTIONS (3)
  - HOT FLUSH [None]
  - PRURITUS [None]
  - URTICARIA [None]
